FAERS Safety Report 15896254 (Version 1)
Quarter: 2019Q1

REPORT INFORMATION
  Report Type: Spontaneous
  Country: US (occurrence: US)
  Receive Date: 20190131
  Receipt Date: 20190131
  Transmission Date: 20190417
  Serious: No
  Sender: FDA-Public Use
  Company Number: US-BAUSCH-BL-2019-002238

PATIENT
  Age: 63 Year
  Sex: Female
  Weight: 64.47 kg

DRUGS (1)
  1. PLENVU [Suspect]
     Active Substance: ASCORBIC ACID\POLYETHYLENE GLYCOL 3350\POTASSIUM CHLORIDE\SODIUM ASCORBATE\SODIUM CHLORIDE\SODIUM SULFATE
     Indication: BOWEL PREPARATION
     Route: 048
     Dates: start: 20190121

REACTIONS (2)
  - Vomiting [Recovering/Resolving]
  - Gastric dilatation [Recovering/Resolving]

NARRATIVE: CASE EVENT DATE: 20190122
